FAERS Safety Report 23048154 (Version 1)
Quarter: 2023Q4

REPORT INFORMATION
  Report Type: Spontaneous
  Country: US (occurrence: US)
  Receive Date: 20231010
  Receipt Date: 20231010
  Transmission Date: 20240110
  Serious: No
  Sender: FDA-Public Use
  Company Number: US-SUN PHARMACEUTICAL INDUSTRIES LTD-2023R1-390083

PATIENT
  Age: 83 Year
  Sex: Female

DRUGS (1)
  1. CEQUA [Suspect]
     Active Substance: CYCLOSPORINE
     Indication: Dry eye
     Dosage: UNK
     Route: 047
     Dates: start: 20230519

REACTIONS (4)
  - Eye irritation [Unknown]
  - Feeling abnormal [Unknown]
  - Product availability issue [Unknown]
  - Eye pain [Unknown]

NARRATIVE: CASE EVENT DATE: 20230519
